FAERS Safety Report 4958419-6 (Version None)
Quarter: 2006Q1

REPORT INFORMATION
  Report Type: 
  Country: None (occurrence: None)
  Receive Date: 20060330
  Receipt Date: 20051021
  Transmission Date: 20060701
  Serious: Yes (Other)
  Sender: FDA-Public Use
  Company Number: US-AVENTIS-200518509US

PATIENT
  Age: 73 Year
  Sex: Female

DRUGS (8)
  1. KETEK [Suspect]
     Indication: CHRONIC SINUSITIS
     Route: 048
     Dates: start: 20050929, end: 20051012
  2. LIPITOR [Concomitant]
     Dosage: DOSE: UNKNOWN
  3. ZYRTEC [Concomitant]
     Dosage: DOSE: UNKNOWN
  4. ATROVENT [Concomitant]
     Dosage: DOSE: UNKNOWN
  5. ATENOLOL [Concomitant]
     Dosage: DOSE: UNKNOWN
  6. PREMARIN [Concomitant]
     Dosage: DOSE: UNKNOWN
  7. ASPIRIN [Concomitant]
     Dosage: DOSE: UNKNOWN
  8. PREDNISONE [Concomitant]
     Dosage: DOSE: UNKNOWN

REACTIONS (4)
  - FATIGUE [None]
  - HEPATIC FAILURE [None]
  - JAUNDICE [None]
  - PRURITUS [None]
